FAERS Safety Report 4703676-4 (Version None)
Quarter: 2005Q2

REPORT INFORMATION
  Report Type: 
  Country: None (occurrence: None)
  Receive Date: 20050208
  Receipt Date: 20050208
  Transmission Date: 20051028
  Serious: Yes (Other)
  Sender: FDA-Public Use
  Company Number: None

PATIENT
  Sex: Female
  Weight: 63.9572 kg

DRUGS (1)
  1. NIFEDIPINE [Suspect]
     Indication: HYPERTENSION
     Dates: start: 19930101, end: 19940101

REACTIONS (4)
  - DIZZINESS [None]
  - STOMACH DISCOMFORT [None]
  - TINNITUS [None]
  - VISION BLURRED [None]
